FAERS Safety Report 25952374 (Version 1)
Quarter: 2025Q4

REPORT INFORMATION
  Report Type: Spontaneous
  Country: US (occurrence: US)
  Receive Date: 20251023
  Receipt Date: 20251023
  Transmission Date: 20260117
  Serious: No
  Sender: ROCHE
  Company Number: US-ROCHE-10000411999

PATIENT
  Age: 35 Year
  Sex: Female

DRUGS (3)
  1. XOLAIR [Suspect]
     Active Substance: OMALIZUMAB
     Indication: Product used for unknown indication
     Route: 065
  2. DUPIXENT [Suspect]
     Active Substance: DUPILUMAB
     Indication: Idiopathic urticaria
     Route: 065
     Dates: start: 20250806
  3. DUPIXENT [Suspect]
     Active Substance: DUPILUMAB
     Indication: Chronic spontaneous urticaria
     Dosage: 300MG/2ML
     Route: 058
     Dates: start: 202508

REACTIONS (4)
  - Joint swelling [Unknown]
  - Dyspnoea [Unknown]
  - Drug ineffective [Unknown]
  - Urticaria [Unknown]
